FAERS Safety Report 11086455 (Version 2)
Quarter: 2015Q2

REPORT INFORMATION
  Report Type: Spontaneous
  Country: NO (occurrence: NO)
  Receive Date: 20150504
  Receipt Date: 20150609
  Transmission Date: 20150821
  Serious: Yes (Other)
  Sender: FDA-Public Use
  Company Number: NO-ROCHE-1553406

PATIENT
  Sex: Female

DRUGS (1)
  1. TAMIFLU [Suspect]
     Active Substance: OSELTAMIVIR PHOSPHATE
     Indication: INFLUENZA
     Route: 065
     Dates: start: 20150227, end: 20150305

REACTIONS (7)
  - Hyperaesthesia [Unknown]
  - Viraemia [Unknown]
  - Dermatitis allergic [Not Recovered/Not Resolved]
  - Abdominal pain [Unknown]
  - Pain [Not Recovered/Not Resolved]
  - Nausea [Unknown]
  - Hepatitis [Unknown]
